FAERS Safety Report 16904463 (Version 1)
Quarter: 2019Q4

REPORT INFORMATION
  Report Type: Spontaneous
  Country: US (occurrence: US)
  Receive Date: 20191010
  Receipt Date: 20191010
  Transmission Date: 20200122
  Serious: No
  Sender: FDA-Public Use
  Company Number: US-BAUSCH-BL-2019-056731

PATIENT
  Sex: Male

DRUGS (1)
  1. BUPROPION (BUPROPION HYDROCHLORIDE) [Suspect]
     Active Substance: BUPROPION HYDROCHLORIDE
     Indication: PRODUCT USED FOR UNKNOWN INDICATION
     Route: 065
     Dates: start: 2011

REACTIONS (1)
  - Drug ineffective [Unknown]
